FAERS Safety Report 25140615 (Version 1)
Quarter: 2025Q1

REPORT INFORMATION
  Report Type: Spontaneous
  Country: CN (occurrence: CN)
  Receive Date: 20250331
  Receipt Date: 20250331
  Transmission Date: 20250409
  Serious: Yes (Other)
  Sender: ROCHE
  Company Number: CN-BoehringerIngelheim-2025-BI-016808

PATIENT
  Age: 69 Year
  Sex: Male
  Weight: 75.0 kg

DRUGS (2)
  1. ALTEPLASE [Suspect]
     Active Substance: ALTEPLASE
     Indication: Cerebral infarction
     Route: 042
     Dates: start: 20250319, end: 20250319
  2. ALTEPLASE [Suspect]
     Active Substance: ALTEPLASE
     Route: 042
     Dates: start: 20250319, end: 20250319

REACTIONS (3)
  - Gingival bleeding [Recovering/Resolving]
  - Tongue erythema [Recovering/Resolving]
  - Extravasation blood [Recovering/Resolving]

NARRATIVE: CASE EVENT DATE: 20250319
